FAERS Safety Report 4590098-2 (Version None)
Quarter: 2005Q1

REPORT INFORMATION
  Report Type: 
  Country: None (occurrence: None)
  Receive Date: 20050217
  Receipt Date: 20050208
  Transmission Date: 20050727
  Serious: Yes (Hospitalization)
  Sender: FDA-Public Use
  Company Number: 212297

PATIENT
  Age: 59 Year
  Sex: Male

DRUGS (2)
  1. MABTHERA (RITUXIMAB) CONC FOR SOLUTION FOR INFUSION [Suspect]
     Indication: MALIGNANT MEDIASTINAL NEOPLASM
     Dosage: 742 MG, INTRAVENOUS
     Route: 042
     Dates: start: 20031223, end: 20031223
  2. MORFIC CHLORIDE [Concomitant]

REACTIONS (3)
  - ABDOMINAL PAIN [None]
  - ANAPHYLACTIC REACTION [None]
  - BLOOD PRESSURE INCREASED [None]
